FAERS Safety Report 19046160 (Version 1)
Quarter: 2021Q1

REPORT INFORMATION
  Report Type: Spontaneous
  Country: TR (occurrence: TR)
  Receive Date: 20210323
  Receipt Date: 20210323
  Transmission Date: 20210420
  Serious: Yes (Other)
  Sender: FDA-Public Use
  Company Number: TR-TEVA-2021-TR-1892844

PATIENT
  Age: 15 Year
  Sex: Female

DRUGS (6)
  1. VALPROIC ACID. [Interacting]
     Active Substance: VALPROIC ACID
     Indication: INTELLECTUAL DISABILITY
     Dosage: INITIAL DOSAGE NOT STATED
     Route: 065
  2. RISPERIDONE. [Suspect]
     Active Substance: RISPERIDONE
     Indication: INTELLECTUAL DISABILITY
     Dosage: 4 MILLIGRAM DAILY;
     Route: 065
  3. VALPROIC ACID. [Interacting]
     Active Substance: VALPROIC ACID
     Dosage: 1000 MILLIGRAM DAILY;
     Route: 065
  4. ARIPIPRAZOLE. [Interacting]
     Active Substance: ARIPIPRAZOLE
     Dosage: 20 MILLIGRAM DAILY;
     Route: 065
  5. METHYLPHENIDATE. [Suspect]
     Active Substance: METHYLPHENIDATE
     Indication: INTELLECTUAL DISABILITY
     Dosage: 50 MILLIGRAM DAILY;
     Route: 065
  6. ARIPIPRAZOLE. [Interacting]
     Active Substance: ARIPIPRAZOLE
     Indication: INTELLECTUAL DISABILITY
     Dosage: 5 MILLIGRAM DAILY;
     Route: 065

REACTIONS (9)
  - Off label use [Unknown]
  - Decreased appetite [Recovering/Resolving]
  - Aggression [Recovering/Resolving]
  - Weight increased [Recovering/Resolving]
  - Intentional self-injury [Recovering/Resolving]
  - Non-24-hour sleep-wake disorder [Recovering/Resolving]
  - Resting tremor [Recovered/Resolved]
  - Drug interaction [Recovered/Resolved]
  - Urinary incontinence [Recovering/Resolving]
